FAERS Safety Report 21124763 (Version 2)
Quarter: 2022Q3

REPORT INFORMATION
  Report Type: Spontaneous
  Country: DE (occurrence: DE)
  Receive Date: 20220725
  Receipt Date: 20220919
  Transmission Date: 20221027
  Serious: Yes (Hospitalization, Other)
  Sender: FDA-Public Use
  Company Number: DE-BoehringerIngelheim-2022-BI-183416

PATIENT
  Sex: Female

DRUGS (6)
  1. JARDIANCE [Suspect]
     Active Substance: EMPAGLIFLOZIN
     Indication: Cardiac failure
     Dosage: 1-0-0 TABLET
  2. Phenprocoumon 3mg [Concomitant]
     Indication: Atrial fibrillation
     Dosage: 0-0-0.5 TABLET
     Route: 048
  3. Metoprolol succinate 23.75 mg [Concomitant]
     Indication: Cardiac failure
     Dosage: 0.5-0-0 TABLET
     Route: 048
  4. Eplerenon 25mg [Concomitant]
     Indication: Cardiac failure
     Dosage: 1-0-0 TABLET
     Route: 048
  5. ATORVASTATIN [Concomitant]
     Active Substance: ATORVASTATIN
     Indication: Hypercholesterolaemia
     Dosage: 0-0-1 TABLET
     Route: 048
  6. PANTOPRAZOLE SODIUM [Concomitant]
     Active Substance: PANTOPRAZOLE SODIUM
     Indication: Product used for unknown indication
     Dosage: 1-0-0 TABLET?EC TABLET
     Route: 048

REACTIONS (2)
  - Hepatic enzyme increased [Recovering/Resolving]
  - Normochromic normocytic anaemia [Unknown]
